FAERS Safety Report 7279350-X (Version None)
Quarter: 2011Q1

REPORT INFORMATION
  Report Type: 
  Country: None (occurrence: None)
  Receive Date: 20110207
  Receipt Date: 20110131
  Transmission Date: 20110831
  Serious: Yes (Hospitalization)
  Sender: FDA-Public Use
  Company Number: JP-BRISTOL-MYERS SQUIBB COMPANY-15477060

PATIENT
  Age: 85 Year
  Sex: Male

DRUGS (6)
  1. OMEPRAL [Concomitant]
  2. BEZATOL SR [Concomitant]
  3. FRANDOL [Concomitant]
  4. URIEF [Concomitant]
  5. IRBETAN [Suspect]
     Indication: HYPERTENSION
     Dates: start: 20091019
  6. ASPIRIN [Suspect]
     Indication: HYPERTENSION

REACTIONS (1)
  - CEREBRAL HAEMORRHAGE [None]
